FAERS Safety Report 7559310-1 (Version None)
Quarter: 2011Q2

REPORT INFORMATION
  Report Type: 
  Country: None (occurrence: None)
  Receive Date: 20110621
  Receipt Date: 20110617
  Transmission Date: 20111010
  Serious: Yes (Death)
  Sender: FDA-Public Use
  Company Number: US-B.I. PHARMACEUTICALS,INC./RIDGEFIELD-2011-BP-15714BP

PATIENT
  Age: 64 Year
  Sex: Female

DRUGS (2)
  1. VICODIN [Concomitant]
     Dates: end: 20110614
  2. COMBIVENT [Suspect]
     Indication: CHRONIC OBSTRUCTIVE PULMONARY DISEASE
     Dosage: 18MCG/103MCG
     Route: 055
     Dates: end: 20110614

REACTIONS (2)
  - HYPERCAPNIA [None]
  - RESPIRATORY FAILURE [None]
